FAERS Safety Report 6999754-X (Version None)
Quarter: 2010Q3

REPORT INFORMATION
  Report Type: 
  Country: None (occurrence: None)
  Receive Date: 20100920
  Receipt Date: 20100401
  Transmission Date: 20110219
  Serious: No
  Sender: FDA-Public Use
  Company Number: US-ASTRAZENECA-2010SE14421

PATIENT
  Sex: Female
  Weight: 61.2 kg

DRUGS (8)
  1. SEROQUEL XR [Suspect]
     Indication: BIPOLAR I DISORDER
     Route: 048
     Dates: start: 20100215
  2. SYNTHROID [Concomitant]
     Indication: HYPERTHYROIDISM
     Dosage: DAILY
     Route: 048
  3. WELLBUTRIN [Concomitant]
     Indication: DEPRESSION
     Dosage: DAILY
     Route: 048
  4. XANAX [Concomitant]
     Indication: ANXIETY
     Dosage: AS REQUIRED
     Route: 048
  5. AMBIEN [Concomitant]
     Indication: INSOMNIA
     Dosage: AS REQUIRED
     Route: 048
  6. ESTROGEN [Concomitant]
     Indication: HORMONE REPLACEMENT THERAPY
     Dosage: DAILY
     Route: 048
  7. TESTOSTERONE [Concomitant]
     Indication: HORMONE REPLACEMENT THERAPY
     Dosage: DAILY
     Route: 048
  8. DEPLIN [Concomitant]
     Indication: HORMONE REPLACEMENT THERAPY
     Dosage: DAILY
     Route: 048

REACTIONS (6)
  - AGITATION [None]
  - ANXIETY [None]
  - IRRITABILITY [None]
  - THERAPEUTIC RESPONSE UNEXPECTED [None]
  - TREMOR [None]
  - WEIGHT INCREASED [None]
